FAERS Safety Report 7404469-X (Version None)
Quarter: 2011Q2

REPORT INFORMATION
  Report Type: 
  Country: None (occurrence: None)
  Receive Date: 20110408
  Receipt Date: 20110401
  Transmission Date: 20111010
  Serious: Yes (Other)
  Sender: FDA-Public Use
  Company Number: US-RB-020574-11

PATIENT
  Age: 49 Year
  Sex: Female

DRUGS (2)
  1. SUBOXONE [Suspect]
     Indication: PRODUCT USED FOR UNKNOWN INDICATION
     Dosage: DOSING INFORMATION UNKNOWN
     Route: 065
  2. SUBOXONE [Suspect]
     Indication: PRODUCT USED FOR UNKNOWN INDICATION
     Dosage: SUBLINGUAL FILM - UNKNOWN DOSING INFORMATION
     Route: 065

REACTIONS (13)
  - HEADACHE [None]
  - LIMB INJURY [None]
  - CONVULSION [None]
  - INTENTIONAL DRUG MISUSE [None]
  - WRIST FRACTURE [None]
  - FATIGUE [None]
  - SWELLING [None]
  - DIZZINESS [None]
  - CEREBROVASCULAR ACCIDENT [None]
  - FALL [None]
  - JOINT INJURY [None]
  - CONDITION AGGRAVATED [None]
  - PNEUMONIA [None]
